FAERS Safety Report 8785921 (Version 1)
Quarter: 2012Q4

REPORT INFORMATION
  Report Type: 
  Country: US (occurrence: US)
  Receive Date: 20120914
  Receipt Date: 20120914
  Transmission Date: 20130627
  Serious: Yes (Death)
  Sender: FDA-Public Use
  Company Number: PHEH2012US017795

PATIENT
  Age: 58 Year
  Sex: Male

DRUGS (2)
  1. AFINITOR [Suspect]
     Indication: RENAL NEOPLASM
     Dosage: 10 mg, QD
     Route: 048
     Dates: start: 20120628, end: 201208
  2. AXITINIB [Suspect]
     Indication: RENAL NEOPLASM
     Dosage: 5 mg, UNK
     Dates: start: 20120828

REACTIONS (1)
  - Death [Fatal]
